FAERS Safety Report 15968992 (Version 2)
Quarter: 2019Q1

REPORT INFORMATION
  Report Type: Spontaneous
  Country: US (occurrence: US)
  Receive Date: 20190215
  Receipt Date: 20190225
  Transmission Date: 20190418
  Serious: No
  Sender: FDA-Public Use
  Company Number: US-SHIRE-US201905111

PATIENT
  Age: 51 Year
  Sex: Female

DRUGS (1)
  1. GAMMAGARD LIQUID [Suspect]
     Active Substance: HUMAN IMMUNOGLOBULIN G
     Indication: IMMUNODEFICIENCY COMMON VARIABLE
     Dosage: 60 MILLIGRAM; EVERY 21 DAYS
     Route: 042

REACTIONS (2)
  - Inappropriate schedule of product administration [Unknown]
  - Poor venous access [Unknown]

NARRATIVE: CASE EVENT DATE: 20190207
